FAERS Safety Report 21907046 (Version 2)
Quarter: 2023Q1

REPORT INFORMATION
  Report Type: Report from Study
  Country: US (occurrence: US)
  Receive Date: 20230125
  Receipt Date: 20230201
  Transmission Date: 20230418
  Serious: Yes (Hospitalization, Other)
  Sender: FDA-Public Use
  Company Number: US-ABBVIE-4282002

PATIENT
  Age: 13 Year
  Sex: Male
  Weight: 34 kg

DRUGS (2)
  1. HUMIRA [Suspect]
     Active Substance: ADALIMUMAB
     Indication: Crohn^s disease
     Dosage: DURATION TEXT: LOADING DOSE, 1 IN ONCE
     Route: 058
     Dates: start: 20230120, end: 20230120
  2. HUMIRA [Suspect]
     Active Substance: ADALIMUMAB

REACTIONS (3)
  - Syncope [Recovered/Resolved]
  - Hypotension [Unknown]
  - Hypertension [Unknown]

NARRATIVE: CASE EVENT DATE: 20230120
